FAERS Safety Report 8350173-3 (Version None)
Quarter: 2012Q2

REPORT INFORMATION
  Report Type: 
  Country: None (occurrence: None)
  Receive Date: 20120510
  Receipt Date: 20120508
  Transmission Date: 20120825
  Serious: Yes (Death, Hospitalization)
  Sender: FDA-Public Use
  Company Number: US-B.I. PHARMACEUTICALS,INC./RIDGEFIELD-2012-BP-06841BP

PATIENT
  Sex: Male
  Weight: 128.37 kg

DRUGS (11)
  1. TAMSULOSIN HCL [Concomitant]
     Dosage: 0.4 MG
  2. SPIRONOLACTONE [Concomitant]
     Dosage: 50 MG
  3. DOCUSATE SODIUM [Concomitant]
     Dosage: 200 MG
  4. LIPITOR [Concomitant]
     Dosage: 20 MG
  5. ASPIRIN [Concomitant]
     Dosage: 81 MG
  6. MAGNESIUM OXIDE [Concomitant]
     Dosage: 2400 MG
  7. LISINOPRIL [Concomitant]
     Dosage: 20 MG
  8. LANOXIN [Concomitant]
     Dosage: 0.125 MG
  9. OXYCODONE HCL [Concomitant]
  10. PRADAXA [Suspect]
     Indication: ATRIAL FIBRILLATION
     Dosage: 300 MG
     Route: 048
     Dates: start: 20110824, end: 20111104
  11. CARVEDILOL [Concomitant]
     Dosage: 12.5 MG

REACTIONS (5)
  - HYPERKALAEMIA [None]
  - SEPTIC SHOCK [None]
  - HAEMORRHAGE [None]
  - INFECTION [None]
  - ISCHAEMIC CARDIOMYOPATHY [None]
